FAERS Safety Report 21484456 (Version 2)
Quarter: 2022Q4

REPORT INFORMATION
  Report Type: Report from Study
  Country: US (occurrence: US)
  Receive Date: 20221020
  Receipt Date: 20221108
  Transmission Date: 20230113
  Serious: No
  Sender: FDA-Public Use
  Company Number: US-ABBVIE-4163726

PATIENT
  Sex: Female

DRUGS (1)
  1. IMBRUVICA [Suspect]
     Active Substance: IBRUTINIB
     Indication: Chronic lymphocytic leukaemia
     Route: 048
     Dates: start: 201805

REACTIONS (9)
  - Heart rate decreased [Unknown]
  - Dry skin [Unknown]
  - Meniscus injury [Unknown]
  - Hypotension [Unknown]
  - Gout [Unknown]
  - Pain [Unknown]
  - Dry eye [Unknown]
  - Limb injury [Unknown]
  - Onychoclasis [Unknown]
